FAERS Safety Report 21739399 (Version 1)
Quarter: 2022Q4

REPORT INFORMATION
  Report Type: Spontaneous
  Country: GB (occurrence: GB)
  Receive Date: 20221216
  Receipt Date: 20221216
  Transmission Date: 20230112
  Serious: Yes (Hospitalization)
  Sender: FDA-Public Use
  Company Number: GB-GLAXOSMITHKLINE-GB2022EME187126

PATIENT

DRUGS (1)
  1. VENTOLIN [Suspect]
     Active Substance: ALBUTEROL SULFATE
     Indication: Product used for unknown indication
     Dosage: UNK

REACTIONS (7)
  - Influenza [Unknown]
  - Dyspnoea [Unknown]
  - Asthma [Unknown]
  - Respiratory tract inflammation [Unknown]
  - Palpitations [Unknown]
  - Malaise [Unknown]
  - Extra dose administered [Unknown]
